FAERS Safety Report 6168591-0 (Version None)
Quarter: 2009Q2

REPORT INFORMATION
  Report Type: 
  Country: None (occurrence: None)
  Receive Date: 20090423
  Receipt Date: 20090415
  Transmission Date: 20091009
  Serious: Yes (Other)
  Sender: FDA-Public Use
  Company Number: 248359

PATIENT
  Age: 63 Year
  Sex: Male

DRUGS (4)
  1. VANCOMYCIN HCL [Suspect]
     Indication: ANTIBIOTIC THERAPY
     Dosage: INTRAVENOUS
     Route: 042
     Dates: start: 20080101, end: 20080101
  2. DOXYCYCLINE [Suspect]
     Indication: ANTIBIOTIC THERAPY
     Dates: start: 20080101, end: 20080101
  3. CEFTRIAXONE [Suspect]
     Indication: ANTIBIOTIC THERAPY
     Dates: start: 20080101, end: 20080101
  4. (MEROPENEM) [Suspect]
     Indication: ANTIBIOTIC THERAPY
     Dates: start: 20080101, end: 20080101

REACTIONS (3)
  - DIARRHOEA [None]
  - FAECES DISCOLOURED [None]
  - STAPHYLOCOCCAL INFECTION [None]
